FAERS Safety Report 9500792 (Version 1)
Quarter: 2013Q1

REPORT INFORMATION
  Report Type: Spontaneous
  Country: US (occurrence: None)
  Receive Date: 20130118
  Receipt Date: 20130118
  Transmission Date: 20140127
  Serious: Yes (Hospitalization)
  Sender: FDA-Public Use
  Company Number: A-NJ2012-61545

PATIENT
  Age: 78 Year
  Sex: Female

DRUGS (4)
  1. TRACLEER [Suspect]
     Indication: PULMONARY ARTERIAL HYPERTENSION
     Route: 048
     Dates: start: 20100123
  2. COUMADIN ( WARFARIN SODIUM) [Concomitant]
  3. TYVASO ( TREPROSTINIL SODIUM) [Concomitant]
  4. ARANESP ( DARBEPOETIN ALFA) [Concomitant]

REACTIONS (6)
  - Dyspnoea [None]
  - Oxygen saturation decreased [None]
  - Pain in jaw [None]
  - Asthenia [None]
  - Decreased appetite [None]
  - Weight decreased [None]
